FAERS Safety Report 10425347 (Version 7)
Quarter: 2019Q3

REPORT INFORMATION
  Report Type: Spontaneous
  Country: AU (occurrence: AU)
  Receive Date: 20140902
  Receipt Date: 20190813
  Transmission Date: 20191004
  Serious: Yes (Hospitalization, Other)
  Sender: FDA-Public Use
  Company Number: AU-ALEXION PHARMACEUTICALS INC.-A201403206

PATIENT
  Age: 22 Year
  Sex: Male
  Weight: 71 kg

DRUGS (5)
  1. SOLIRIS [Suspect]
     Active Substance: ECULIZUMAB
     Dosage: 900 MG, Q2W
     Route: 042
     Dates: start: 20130822
  2. AMOXICILLIN. [Concomitant]
     Active Substance: AMOXICILLIN
     Indication: PROPHYLAXIS
     Route: 065
  3. SOLIRIS [Suspect]
     Active Substance: ECULIZUMAB
     Dosage: 900 MG, Q2W
     Route: 042
     Dates: start: 20130908
  4. SOLIRIS [Suspect]
     Active Substance: ECULIZUMAB
     Dosage: 900 MG, Q2W
     Route: 042
     Dates: start: 201903
  5. SOLIRIS [Suspect]
     Active Substance: ECULIZUMAB
     Indication: PAROXYSMAL NOCTURNAL HAEMOGLOBINURIA
     Dosage: FORTNIGHTLY
     Route: 065
     Dates: start: 201203

REACTIONS (13)
  - Haemoglobin abnormal [Unknown]
  - Bipolar disorder [Unknown]
  - Substance use [Unknown]
  - Megakaryocytes decreased [Unknown]
  - Blood iron increased [Unknown]
  - Mental disorder [Unknown]
  - Granulocyte count decreased [Unknown]
  - Meningococcal infection [Recovered/Resolved]
  - Aplastic anaemia [Unknown]
  - Bone marrow failure [Unknown]
  - Haemophagocytic lymphohistiocytosis [Unknown]
  - Red blood cell count increased [Unknown]
  - Platelet count abnormal [Unknown]

NARRATIVE: CASE EVENT DATE: 20140819
